FAERS Safety Report 5259211-8 (Version None)
Quarter: 2007Q1

REPORT INFORMATION
  Report Type: 
  Country: None (occurrence: None)
  Receive Date: 20070308
  Receipt Date: 20070223
  Transmission Date: 20070707
  Serious: Yes (Hospitalization)
  Sender: FDA-Public Use
  Company Number: US-AMGEN-US212549

PATIENT
  Sex: Female

DRUGS (2)
  1. ENBREL [Suspect]
     Indication: RHEUMATOID ARTHRITIS
     Route: 065
     Dates: start: 20060901
  2. METHOTREXATE [Concomitant]
     Route: 065
     Dates: start: 20040101

REACTIONS (5)
  - ACCIDENTAL NEEDLE STICK [None]
  - DEPRESSION [None]
  - INJECTION SITE REACTION [None]
  - SUICIDAL IDEATION [None]
  - SUICIDE ATTEMPT [None]
